FAERS Safety Report 15187052 (Version 1)
Quarter: 2018Q3

REPORT INFORMATION
  Report Type: Report from Study
  Country: US (occurrence: US)
  Receive Date: 20180723
  Receipt Date: 20180723
  Transmission Date: 20181010
  Serious: No
  Sender: FDA-Public Use
  Company Number: US-EXELIXIS-CABO-17011541

PATIENT
  Age: 82 Year
  Sex: Female

DRUGS (10)
  1. MIRTAZAPINE. [Concomitant]
     Active Substance: MIRTAZAPINE
  2. CABOMETYX [Suspect]
     Active Substance: CABOZANTINIB S-MALATE
     Indication: RENAL CANCER
     Dosage: Q60 UNK, UNK
     Route: 048
     Dates: start: 20171012
  3. COENZYME [Concomitant]
     Active Substance: UBIDECARENONE
  4. XGEVA [Concomitant]
     Active Substance: DENOSUMAB
  5. VITAMIN D [Concomitant]
     Active Substance: CHOLECALCIFEROL
  6. HYDROCODONE [Concomitant]
     Active Substance: HYDROCODONE
  7. VITAMIN C [Concomitant]
     Active Substance: ASCORBIC ACID
  8. PAZOPANIB [Concomitant]
     Active Substance: PAZOPANIB
  9. CRANBERRY. [Concomitant]
     Active Substance: CRANBERRY
  10. CYANOCOBALAMIN. [Concomitant]
     Active Substance: CYANOCOBALAMIN

REACTIONS (1)
  - Diarrhoea [Unknown]

NARRATIVE: CASE EVENT DATE: 201710
